FAERS Safety Report 5891072-6 (Version None)
Quarter: 2008Q3

REPORT INFORMATION
  Report Type: 
  Country: None (occurrence: None)
  Receive Date: 20080916
  Receipt Date: 20080916
  Transmission Date: 20090109
  Serious: Yes (Disabling)
  Sender: FDA-Public Use
  Company Number: None

PATIENT
  Sex: Female
  Weight: 79.5 kg

DRUGS (21)
  1. AVASTIN [Suspect]
     Indication: BREAST CANCER
     Dosage: 1259MG Q3WEEKS IV
     Route: 042
     Dates: start: 20070919, end: 20080723
  2. AVASTIN [Suspect]
     Indication: METASTASES TO CENTRAL NERVOUS SYSTEM
     Dosage: 1259MG Q3WEEKS IV
     Route: 042
     Dates: start: 20070919, end: 20080723
  3. GEMCITABINE [Suspect]
     Dosage: 1970MG 2 OUT OF 3 WEEKS IV
     Route: 042
     Dates: start: 20070919, end: 20080723
  4. ZOFRAN [Concomitant]
  5. NEXIUM [Concomitant]
  6. DECADRON SRC [Concomitant]
  7. WELLBUTRIN [Concomitant]
  8. LEXAPRO [Concomitant]
  9. ATIVAN [Concomitant]
  10. VITAMIN B6 [Concomitant]
  11. MULTI-VITAMIN [Concomitant]
  12. AMBIEN [Concomitant]
  13. OXYCONTIN [Concomitant]
  14. OXYCODONE HCL [Concomitant]
  15. COQ10 [Concomitant]
  16. ZYRTEC [Concomitant]
  17. COLACE [Concomitant]
  18. DULCOLAX [Concomitant]
  19. MOTRIN [Concomitant]
  20. MIRALAX [Concomitant]
  21. GEMZAR [Concomitant]

REACTIONS (5)
  - AUTOIMMUNE DISORDER [None]
  - MORPHOEA [None]
  - PANNICULITIS [None]
  - RASH [None]
  - SCLERODERMA [None]
